FAERS Safety Report 16025744 (Version 2)
Quarter: 2019Q1

REPORT INFORMATION
  Report Type: Report from Study
  Country: IT (occurrence: IT)
  Receive Date: 20190302
  Receipt Date: 20190327
  Transmission Date: 20190418
  Serious: Yes (Other)
  Sender: FDA-Public Use
  Company Number: IT-ACCORD-109962

PATIENT
  Age: 79 Year
  Sex: Male

DRUGS (4)
  1. DEURSIL [Concomitant]
     Active Substance: URSODIOL
     Dosage: STRENGTH: 300 MG
     Route: 048
  2. SERTRALINE [Suspect]
     Active Substance: SERTRALINE HYDROCHLORIDE
     Indication: DEPRESSION
     Route: 048
     Dates: start: 20180718, end: 20180728
  3. TAVOR [Concomitant]
     Route: 048
  4. TIKLID [Concomitant]
     Active Substance: TICLOPIDINE HYDROCHLORIDE
     Dosage: STRENGTH: 250 MG
     Route: 048

REACTIONS (2)
  - Hyponatraemia [Recovering/Resolving]
  - Dysuria [Recovering/Resolving]

NARRATIVE: CASE EVENT DATE: 20180728
